FAERS Safety Report 5325622-5 (Version None)
Quarter: 2007Q2

REPORT INFORMATION
  Report Type: 
  Country: None (occurrence: None)
  Receive Date: 20070515
  Receipt Date: 20070504
  Transmission Date: 20071010
  Serious: Yes (Hospitalization, Other)
  Sender: FDA-Public Use
  Company Number: US-ELI_LILLY_AND_COMPANY-US200703000298

PATIENT
  Age: 58 Year
  Sex: Female
  Weight: 57.142 kg

DRUGS (6)
  1. CALCIUM WITH VITAMIN D [Concomitant]
     Dosage: 600 MG, 2/D
  2. MULTI-VITAMIN [Concomitant]
  3. CYMBALTA [Suspect]
     Indication: ANXIETY
     Dosage: 30 MG, DAILY (1/D)
     Route: 048
     Dates: start: 20070215, end: 20070201
  4. IBUPROFEN [Concomitant]
     Dosage: UNK, AS NEEDED
  5. TYLENOL [Concomitant]
     Indication: PAIN
     Dosage: UNK, AS NEEDED
     Route: 048
  6. ALEVE [Concomitant]
     Indication: PAIN

REACTIONS (4)
  - ASPARTATE AMINOTRANSFERASE INCREASED [None]
  - GRAND MAL CONVULSION [None]
  - LOSS OF CONSCIOUSNESS [None]
  - SOMNOLENCE [None]
